FAERS Safety Report 7589627-6 (Version None)
Quarter: 2011Q3

REPORT INFORMATION
  Report Type: 
  Country: None (occurrence: None)
  Receive Date: 20110705
  Receipt Date: 20110629
  Transmission Date: 20111222
  Serious: Yes (Disabling, Other)
  Sender: FDA-Public Use
  Company Number: US-PFIZER INC-2011145539

PATIENT
  Sex: Female

DRUGS (1)
  1. CELONTIN [Suspect]
     Indication: EPILEPSY
     Dosage: UNK
     Route: 048
     Dates: start: 20110601

REACTIONS (4)
  - BALANCE DISORDER [None]
  - DYSSTASIA [None]
  - FATIGUE [None]
  - FEELING DRUNK [None]
